FAERS Safety Report 8241497-9 (Version None)
Quarter: 2012Q1

REPORT INFORMATION
  Report Type: 
  Country: None (occurrence: None)
  Receive Date: 20120328
  Receipt Date: 20120321
  Transmission Date: 20120608
  Serious: Yes (Hospitalization)
  Sender: FDA-Public Use
  Company Number: DE-ROCHE-1019082

PATIENT
  Age: 65 Year
  Sex: Male
  Weight: 88.2 kg

DRUGS (12)
  1. VEMURAFENIB [Suspect]
     Indication: METASTATIC MALIGNANT MELANOMA
     Dosage: DATE OF LAST DOSE PRIOR TO SAE : 17/NOV/2011
     Route: 048
     Dates: start: 20111104
  2. RAMIPRIL [Concomitant]
     Dates: start: 20060101
  3. ZOLEDRONOC ACID [Concomitant]
     Dates: start: 20111014
  4. HYDROMORPHONE HCL [Concomitant]
     Dates: start: 20111021
  5. ZOLEDRONOC ACID [Concomitant]
     Dates: start: 20111014
  6. OMEPRAZOLE [Concomitant]
     Dates: start: 20111014
  7. KALIUMIODID [Concomitant]
     Dates: start: 20060101
  8. FINASTERID [Concomitant]
     Dates: start: 20090101
  9. NATRIUMPICOSULFAT [Concomitant]
     Dosage: DAILY DOSE : 30 DROPS
     Dates: start: 20111021
  10. XIPAMID [Concomitant]
     Dates: start: 20060101
  11. DIGESTION AID (UNK INGREDIENTS) [Concomitant]
     Dosage: DAILY DOSE : 60 DROPS
     Dates: start: 20111021
  12. BISOPROLOL FUMARATE [Concomitant]
     Dates: start: 20110201

REACTIONS (1)
  - BURSITIS [None]
